FAERS Safety Report 11293463 (Version 11)
Quarter: 2016Q1

REPORT INFORMATION
  Report Type: Spontaneous
  Country: US (occurrence: US)
  Receive Date: 20150722
  Receipt Date: 20160125
  Transmission Date: 20160525
  Serious: Yes (Hospitalization, Other)
  Sender: FDA-Public Use
  Company Number: PHEH2015US013913

PATIENT
  Sex: Male
  Weight: 95.25 kg

DRUGS (3)
  1. TRILEPTAL [Suspect]
     Active Substance: OXCARBAZEPINE
     Indication: EPILEPSY
     Dosage: 750 MG, BID (600 +150 MG BID)
     Route: 065
     Dates: start: 2008
  2. TRILEPTAL [Suspect]
     Active Substance: OXCARBAZEPINE
     Indication: LOSS OF CONSCIOUSNESS
     Dosage: 750 MG, BID (600 +150 MG BID)
     Route: 065
     Dates: start: 2008
  3. DILANTIN [Suspect]
     Active Substance: PHENYTOIN
     Indication: PRODUCT USED FOR UNKNOWN INDICATION
     Dosage: 30 MG, UNK
     Route: 065

REACTIONS (6)
  - Depression [Unknown]
  - Feeling abnormal [Unknown]
  - Drug ineffective [Unknown]
  - Epilepsy [Not Recovered/Not Resolved]
  - Seizure [Not Recovered/Not Resolved]
  - Loss of consciousness [Not Recovered/Not Resolved]
